FAERS Safety Report 17602913 (Version 1)
Quarter: 2020Q1

REPORT INFORMATION
  Report Type: Spontaneous
  Country: US (occurrence: US)
  Receive Date: 20200331
  Receipt Date: 20200331
  Transmission Date: 20200409
  Serious: No
  Sender: FDA-Public Use
  Company Number: US-DRREDDYS-USA/USA/20/0120994

PATIENT
  Age: 68 Year
  Sex: Female
  Weight: 68.4 kg

DRUGS (4)
  1. OMEPRAZOLE MAGNESIUM DELAYED RELEASE OTC [Suspect]
     Active Substance: OMEPRAZOLE MAGNESIUM
     Indication: DYSPEPSIA
     Route: 048
     Dates: start: 20200319
  2. CETIRIZINE [Interacting]
     Active Substance: CETIRIZINE HYDROCHLORIDE
     Indication: PRODUCT USED FOR UNKNOWN INDICATION
     Route: 065
  3. ABILIFY [Concomitant]
     Active Substance: ARIPIPRAZOLE
     Indication: PRODUCT USED FOR UNKNOWN INDICATION
     Route: 065
  4. AMLODIPINE [Interacting]
     Active Substance: AMLODIPINE BESYLATE
     Indication: PRODUCT USED FOR UNKNOWN INDICATION
     Route: 065

REACTIONS (5)
  - Drug interaction [Recovered/Resolved]
  - Asthenia [Recovered/Resolved]
  - Dizziness [Recovered/Resolved]
  - Malaise [Recovered/Resolved]
  - Nausea [Recovered/Resolved]

NARRATIVE: CASE EVENT DATE: 20200319
